FAERS Safety Report 17347905 (Version 1)
Quarter: 2020Q1

REPORT INFORMATION
  Report Type: Report from Study
  Country: US (occurrence: US)
  Receive Date: 20200130
  Receipt Date: 20200130
  Transmission Date: 20200409
  Serious: Yes (Death, Hospitalization)
  Sender: FDA-Public Use
  Company Number: US-MYLANLABS-2020M1010674

PATIENT
  Age: 14 Year
  Sex: Male

DRUGS (1)
  1. GUANFACINE. [Suspect]
     Active Substance: GUANFACINE
     Indication: PRODUCT USED FOR UNKNOWN INDICATION
     Route: 048

REACTIONS (7)
  - Coma [Fatal]
  - Hypotension [Fatal]
  - Intentional product use issue [Unknown]
  - Respiratory arrest [Fatal]
  - Tachycardia [Fatal]
  - Cardiac arrest [Fatal]
  - Bradycardia [Fatal]
